FAERS Safety Report 4312289-8 (Version None)
Quarter: 2004Q1

REPORT INFORMATION
  Report Type: 
  Country: None (occurrence: None)
  Receive Date: 20040305
  Receipt Date: 20040303
  Transmission Date: 20041129
  Serious: Yes (Hospitalization)
  Sender: FDA-Public Use
  Company Number: CH-GLAXOSMITHKLINE-A0501130A

PATIENT
  Age: 68 Year
  Sex: Male

DRUGS (5)
  1. NAVELBINE [Suspect]
     Indication: LUNG NEOPLASM MALIGNANT
     Route: 042
     Dates: end: 20040102
  2. CARBOPLATIN [Suspect]
     Indication: LUNG NEOPLASM MALIGNANT
     Route: 042
     Dates: end: 20040102
  3. GEMCITABINE [Concomitant]
     Indication: LUNG NEOPLASM MALIGNANT
     Route: 065
     Dates: start: 20040108, end: 20040108
  4. NEURONTIN [Concomitant]
     Dates: start: 20040103, end: 20040202
  5. TRAMADOL [Concomitant]
     Dates: start: 20040103, end: 20040108

REACTIONS (1)
  - HALLUCINATION, VISUAL [None]
